FAERS Safety Report 7821507-0 (Version None)
Quarter: 2011Q4

REPORT INFORMATION
  Report Type: 
  Country: None (occurrence: None)
  Receive Date: 20111018
  Receipt Date: 20111014
  Transmission Date: 20120403
  Serious: Yes (Hospitalization, Other)
  Sender: FDA-Public Use
  Company Number: US-AMGEN-USASP2011053227

PATIENT
  Sex: Male

DRUGS (3)
  1. RITUXAN [Concomitant]
  2. NPLATE [Suspect]
     Indication: IDIOPATHIC THROMBOCYTOPENIC PURPURA
     Dosage: 1240 MUG, QWK
     Dates: start: 20090701
  3. PREDNISONE [Concomitant]

REACTIONS (13)
  - PLATELET COUNT DECREASED [None]
  - VOMITING [None]
  - PLATELET COUNT ABNORMAL [None]
  - PYREXIA [None]
  - NASOPHARYNGITIS [None]
  - DIZZINESS [None]
  - CATARACT [None]
  - NAUSEA [None]
  - ABDOMINAL PAIN [None]
  - INSOMNIA [None]
  - CHILLS [None]
  - MUSCULOSKELETAL PAIN [None]
  - ANXIETY [None]
